FAERS Safety Report 9005124 (Version 1)
Quarter: 2013Q1

REPORT INFORMATION
  Report Type: Spontaneous
  Country: US (occurrence: US)
  Receive Date: 20130109
  Receipt Date: 20130109
  Transmission Date: 20140127
  Serious: No
  Sender: FDA-Public Use
  Company Number: US-BAYER-2012-136240

PATIENT
  Age: 69 Year
  Sex: Female
  Weight: 49.89 kg

DRUGS (2)
  1. ALEVE LIQUID GELS [Suspect]
     Indication: ANALGESIC THERAPY
     Dosage: 3 DF, QD
     Route: 048
     Dates: start: 20121218, end: 20121224
  2. ALEVE CAPLET/TABLET,MIDOL EXTENDED RELIEF CAPLET [Suspect]
     Dosage: 3 DF, QD
     Dates: start: 20121218

REACTIONS (2)
  - Drug ineffective [None]
  - Inappropriate schedule of drug administration [None]
